FAERS Safety Report 15884118 (Version 1)
Quarter: 2019Q1

REPORT INFORMATION
  Report Type: Report from Study
  Country: US (occurrence: US)
  Receive Date: 20190129
  Receipt Date: 20190129
  Transmission Date: 20190417
  Serious: Yes (Hospitalization, Other)
  Sender: FDA-Public Use
  Company Number: US-BRISTOL-MYERS SQUIBB COMPANY-BMS-2019-007753

PATIENT
  Age: 60 Year
  Sex: Female
  Weight: 60.1 kg

DRUGS (2)
  1. NIVOLUMAB [Suspect]
     Active Substance: NIVOLUMAB
     Indication: ENDOMETRIAL CANCER
     Dosage: 240 MG, OVER 60 MINUTES ON DAYS 1 AND 15 FOR 4 CYCLES
     Route: 042
     Dates: start: 20161216
  2. NIVOLUMAB [Suspect]
     Active Substance: NIVOLUMAB
     Indication: PRODUCT USED FOR UNKNOWN INDICATION
     Dosage: 480 MG, OVER 60 MINUTES EVERY 4 WEEKS
     Route: 042

REACTIONS (2)
  - Hydronephrosis [Unknown]
  - Small intestinal obstruction [Recovered/Resolved]

NARRATIVE: CASE EVENT DATE: 20181226
